FAERS Safety Report 22179701 (Version 1)
Quarter: 2023Q2

REPORT INFORMATION
  Report Type: Spontaneous
  Country: ES (occurrence: ES)
  Receive Date: 20230406
  Receipt Date: 20230406
  Transmission Date: 20230722
  Serious: Yes (Other)
  Sender: FDA-Public Use
  Company Number: ES-BEH-2021131770

PATIENT
  Age: 8 Year
  Sex: Female

DRUGS (4)
  1. IDELVION [Suspect]
     Active Substance: COAGULATION FACTOR IX RECOMBINANT HUMAN
     Indication: Factor IX deficiency
     Dosage: 1000 INTERNATIONAL UNIT, EVERY 12 DAYS
     Route: 065
     Dates: start: 202009
  2. IDELVION [Suspect]
     Active Substance: COAGULATION FACTOR IX RECOMBINANT HUMAN
     Indication: Factor IX deficiency
     Dosage: 1000 INTERNATIONAL UNIT, EVERY 12 DAYS
     Route: 065
     Dates: start: 202009
  3. IDELVION [Suspect]
     Active Substance: COAGULATION FACTOR IX RECOMBINANT HUMAN
     Dosage: 1250 INTERNATIONAL UNIT, EVERY 12-14 DAYS
     Route: 065
  4. IDELVION [Suspect]
     Active Substance: COAGULATION FACTOR IX RECOMBINANT HUMAN
     Dosage: 1250 INTERNATIONAL UNIT, EVERY 12-14 DAYS
     Route: 065

REACTIONS (4)
  - No adverse event [Unknown]
  - Off label use [Unknown]
  - Haemarthrosis [Unknown]
  - Traumatic haematoma [Unknown]
